FAERS Safety Report 4412415-6 (Version None)
Quarter: 2004Q3

REPORT INFORMATION
  Report Type: 
  Country: None (occurrence: None)
  Receive Date: 20040727
  Receipt Date: 20040716
  Transmission Date: 20050211
  Serious: Yes (Hospitalization, Other)
  Sender: FDA-Public Use
  Company Number: 200313767BCC

PATIENT
  Age: 78 Year
  Sex: Male
  Weight: 79.6063 kg

DRUGS (12)
  1. MILK OF MAGNESIA TAB [Suspect]
     Dosage: ONCE
  2. ZOLOFT [Concomitant]
  3. LANTUS [Concomitant]
  4. PEPCID [Concomitant]
  5. KAY CIEL DURA-TABS [Concomitant]
  6. NORVASC [Concomitant]
  7. LISINOPRIL [Concomitant]
  8. ASPIRIN [Concomitant]
  9. FOLATE [Concomitant]
  10. HYDROCHLOROTHIAZIDE [Concomitant]
  11. ATENOLOL [Concomitant]
  12. TRAZODONE HCL [Concomitant]

REACTIONS (4)
  - ABDOMINAL DISTENSION [None]
  - ABDOMINAL INFECTION [None]
  - ABDOMINAL PAIN [None]
  - MEDICATION ERROR [None]
